FAERS Safety Report 8919333 (Version 9)
Quarter: 2014Q2

REPORT INFORMATION
  Report Type: Spontaneous
  Country: US (occurrence: US)
  Receive Date: 20121121
  Receipt Date: 20140509
  Transmission Date: 20141212
  Serious: Yes (Other)
  Sender: FDA-Public Use
  Company Number: US-PFIZER INC-2012290016

PATIENT
  Age: 80 Year
  Sex: Female
  Weight: 82.99 kg

DRUGS (10)
  1. SUTENT [Suspect]
     Indication: METASTATIC RENAL CELL CARCINOMA
     Dosage: 25 MG, CYCLIC (25MG DAILY FOR 28 DAYS THEN 14 DAYS OFF)
     Route: 048
     Dates: start: 20121003, end: 20140401
  2. INSULIN [Concomitant]
     Dosage: UNK
  3. AVAPRO [Concomitant]
     Dosage: UNK
  4. CARDIZEM [Concomitant]
     Dosage: UNK
  5. HYDROCHLOROTHIAZIDE [Concomitant]
     Dosage: UNK
  6. LIPITOR [Concomitant]
     Dosage: UNK
  7. SYNTHROID [Concomitant]
     Dosage: 100 UG, UNK
  8. NOVOLOG 70/30 [Concomitant]
     Dosage: UNK
  9. MAGNESIUM OXIDE [Concomitant]
     Dosage: UNK, AS NEEDED
  10. OMEPRAZOLE [Concomitant]
     Dosage: UNK

REACTIONS (13)
  - Urinary tract infection [Unknown]
  - Fatigue [Not Recovered/Not Resolved]
  - Dyspepsia [Unknown]
  - Influenza [Unknown]
  - Upper respiratory tract infection [Unknown]
  - Bronchitis [Unknown]
  - Sinus congestion [Unknown]
  - Cough [Unknown]
  - Alopecia [Unknown]
  - Thyroid disorder [Unknown]
  - Disease progression [Unknown]
  - Metastatic renal cell carcinoma [Unknown]
  - Flatulence [Not Recovered/Not Resolved]
